FAERS Safety Report 21417023 (Version 2)
Quarter: 2022Q4

REPORT INFORMATION
  Report Type: Spontaneous
  Country: US (occurrence: US)
  Receive Date: 20221006
  Receipt Date: 20221007
  Transmission Date: 20230112
  Serious: No
  Sender: FDA-Public Use
  Company Number: US-PFIZER INC-202201197603

PATIENT
  Age: 85 Year
  Sex: Male

DRUGS (2)
  1. PAXLOVID [Suspect]
     Active Substance: NIRMATRELVIR\RITONAVIR
     Indication: COVID-19 treatment
     Dosage: 3 DF, 2X/DAY (MORNING AND IN THE AFTERNOON)
     Dates: start: 20220929
  2. SIMVASTATIN [Suspect]
     Active Substance: SIMVASTATIN
     Dosage: UNK

REACTIONS (4)
  - Diarrhoea [Unknown]
  - Contraindicated product administered [Unknown]
  - Dysphagia [Unknown]
  - Throat tightness [Unknown]

NARRATIVE: CASE EVENT DATE: 20220929
